FAERS Safety Report 4808240-4 (Version None)
Quarter: 2005Q4

REPORT INFORMATION
  Report Type: 
  Country: None (occurrence: None)
  Receive Date: 20051025
  Receipt Date: 20050715
  Transmission Date: 20060501
  Serious: Yes (Hospitalization, Other)
  Sender: FDA-Public Use
  Company Number: 200516453GDDC

PATIENT
  Age: 49 Year
  Sex: Female
  Weight: 75.4 kg

DRUGS (7)
  1. INSULIN GLARGINE [Suspect]
     Indication: DIABETES MELLITUS
     Route: 058
     Dates: start: 20050510, end: 20050702
  2. AMARYL [Suspect]
     Indication: DIABETES MELLITUS
     Route: 048
     Dates: start: 20050510, end: 20050702
  3. APROVEL [Concomitant]
     Indication: HYPERTENSION
     Route: 048
     Dates: start: 20020116
  4. AMLODIPINE [Concomitant]
     Indication: HYPERTENSION
     Route: 048
     Dates: start: 20021016
  5. PRAVACHOL [Concomitant]
     Indication: HYPERCHOLESTEROLAEMIA
     Route: 048
     Dates: start: 20021016
  6. NEUROBION [Concomitant]
     Indication: NEUROPATHY
     Dosage: DOSE: 1/1
     Route: 048
     Dates: start: 20050329
  7. METFORMIN [Concomitant]
     Indication: DIABETES MELLITUS
     Route: 048
     Dates: start: 19920911, end: 20050702

REACTIONS (5)
  - HYPOGLYCAEMIA [None]
  - LETHARGY [None]
  - ORAL INTAKE REDUCED [None]
  - PYREXIA [None]
  - URINARY TRACT INFECTION [None]
